FAERS Safety Report 6688436-X (Version None)
Quarter: 2010Q2

REPORT INFORMATION
  Report Type: 
  Country: None (occurrence: None)
  Receive Date: 20100420
  Receipt Date: 20100415
  Transmission Date: 20101027
  Serious: Yes (Disabling)
  Sender: FDA-Public Use
  Company Number: DK-ASTRAZENECA-2008SE04686

PATIENT
  Sex: Female
  Weight: 60 kg

DRUGS (3)
  1. SYMBICORT [Suspect]
     Indication: ASTHMA
     Route: 055
     Dates: start: 20060101, end: 20070101
  2. SERETIDE [Suspect]
     Indication: ASTHMA
     Dosage: 50/500 ONE INHALATION TWICE DAILY
     Route: 055
     Dates: start: 20030328, end: 20080801
  3. FLIXOTIDE [Suspect]
     Indication: ASTHMA
     Route: 055

REACTIONS (3)
  - APHONIA [None]
  - DYSPHONIA [None]
  - NASOPHARYNGITIS [None]
